FAERS Safety Report 6059280-1 (Version None)
Quarter: 2009Q1

REPORT INFORMATION
  Report Type: 
  Country: None (occurrence: None)
  Receive Date: 20090130
  Receipt Date: 20090123
  Transmission Date: 20090719
  Serious: Yes (Hospitalization)
  Sender: FDA-Public Use
  Company Number: ES-ROCHE-589499

PATIENT
  Sex: Female
  Weight: 69.5 kg

DRUGS (11)
  1. CAPECITABINE [Suspect]
     Indication: COLORECTAL CANCER METASTATIC
     Route: 048
     Dates: start: 20080801, end: 20081007
  2. BEVACIZUMAB [Suspect]
     Indication: COLORECTAL CANCER METASTATIC
     Dosage: FORM: INFUSION
     Route: 042
     Dates: start: 20080801, end: 20081007
  3. OXALIPLATIN [Suspect]
     Indication: COLORECTAL CANCER METASTATIC
     Route: 042
     Dates: start: 20080801, end: 20081007
  4. OMEPRAZOLE [Concomitant]
     Dates: start: 20080718, end: 20080929
  5. ACETAMINOPHEN [Concomitant]
     Dates: start: 20080721, end: 20080929
  6. ALPRAZOLAM [Concomitant]
     Dates: start: 20080729, end: 20080929
  7. METAMIZOLE CALCIUM [Concomitant]
     Dosage: DRUG NAME REPORTED AS METAMIZOL.
     Dates: start: 20080910, end: 20080929
  8. METOCLOPRAMIDA [Concomitant]
     Dates: start: 20080910, end: 20080929
  9. MEGESTROL ACETATE [Concomitant]
     Dates: start: 20080910, end: 20080929
  10. LOPERAMIDE HCL [Concomitant]
     Dates: start: 20080912, end: 20080929
  11. TRAMADOL HCL [Concomitant]
     Dates: start: 20080910, end: 20080929

REACTIONS (3)
  - BACTERIAL INFECTION [None]
  - DOUGLAS' ABSCESS [None]
  - INTESTINAL OBSTRUCTION [None]
